FAERS Safety Report 6377298-6 (Version None)
Quarter: 2009Q3

REPORT INFORMATION
  Report Type: 
  Country: None (occurrence: None)
  Receive Date: 20090925
  Receipt Date: 20090914
  Transmission Date: 20100115
  Serious: Yes (Other)
  Sender: FDA-Public Use
  Company Number: NO-GENENTECH-290634

PATIENT
  Age: 33 Year
  Sex: Male

DRUGS (4)
  1. RITUXIMAB [Suspect]
     Indication: ANTISYNTHETASE SYNDROME
     Dosage: 375 MG/M2, Q4W
     Route: 065
  2. PREDNISOLONE [Suspect]
     Indication: ANTISYNTHETASE SYNDROME
     Dosage: UNK
     Route: 048
  3. IMMUNE GLOBULIN INTRAVENOUS (HUMAN) [Concomitant]
     Indication: DRUG USE FOR UNKNOWN INDICATION
  4. AZATHIOPRINE [Concomitant]
     Indication: DRUG USE FOR UNKNOWN INDICATION

REACTIONS (1)
  - FIBROSIS [None]
